FAERS Safety Report 5773153-0 (Version None)
Quarter: 2008Q2

REPORT INFORMATION
  Report Type: 
  Country: None (occurrence: None)
  Receive Date: 20080615
  Receipt Date: 20080324
  Transmission Date: 20081010
  Serious: No
  Sender: FDA-Public Use
  Company Number: US-BAYER-200811310BCC

PATIENT
  Age: 83 Year
  Sex: Female
  Weight: 56 kg

DRUGS (5)
  1. ALEVE (CAPLET) [Suspect]
     Indication: PAIN
     Dosage: TOTAL DAILY DOSE: 220 MG  UNIT DOSE: 220 MG
     Route: 048
  2. HYDROCHLOROTHIAZIDE [Concomitant]
  3. LEVOXYL [Concomitant]
  4. EYE DROPS [Concomitant]
  5. CLONAZEPAM [Concomitant]

REACTIONS (1)
  - CONSTIPATION [None]
